FAERS Safety Report 5655366-1 (Version None)
Quarter: 2008Q1

REPORT INFORMATION
  Report Type: 
  Country: None (occurrence: None)
  Receive Date: 20080307
  Receipt Date: 20080228
  Transmission Date: 20080703
  Serious: Yes (Hospitalization)
  Sender: FDA-Public Use
  Company Number: US-MERCK-0706USA02014

PATIENT
  Age: 68 Year
  Sex: Female
  Weight: 53 kg

DRUGS (1)
  1. FOSAMAX [Suspect]
     Indication: OSTEOPOROSIS
     Route: 048
     Dates: start: 20030507, end: 20030623

REACTIONS (23)
  - ANXIETY DISORDER [None]
  - BREAST PAIN [None]
  - BRONCHITIS [None]
  - DYSPNOEA EXERTIONAL [None]
  - FRACTURED SACRUM [None]
  - GASTROOESOPHAGEAL REFLUX DISEASE [None]
  - HYPOTENSION [None]
  - INSOMNIA [None]
  - JOINT EFFUSION [None]
  - NAUSEA [None]
  - OEDEMA PERIPHERAL [None]
  - ORAL CANDIDIASIS [None]
  - OSTEOARTHRITIS [None]
  - PAIN [None]
  - PELVIC FRACTURE [None]
  - PERIPHERAL VASCULAR DISORDER [None]
  - PYELONEPHRITIS [None]
  - RESORPTION BONE INCREASED [None]
  - ROTATOR CUFF SYNDROME [None]
  - SINUSITIS [None]
  - TEMPOROMANDIBULAR JOINT SYNDROME [None]
  - TRISMUS [None]
  - URINARY INCONTINENCE [None]
